FAERS Safety Report 9800121 (Version 2)
Quarter: 2014Q1

REPORT INFORMATION
  Report Type: Spontaneous
  Country: US (occurrence: US)
  Receive Date: 20140106
  Receipt Date: 20140106
  Transmission Date: 20141002
  Serious: No
  Sender: FDA-Public Use
  Company Number: US-GILEAD-2010-0032178

PATIENT
  Age: 50 Year
  Sex: Female
  Weight: 106.59 kg

DRUGS (14)
  1. LETAIRIS [Suspect]
     Indication: PULMONARY ARTERIAL HYPERTENSION
     Route: 048
     Dates: start: 20100907
  2. LETAIRIS [Suspect]
     Route: 048
     Dates: start: 20101105
  3. CARVEDILOL [Concomitant]
  4. FUROSEMIDE [Concomitant]
  5. WARFARIN [Concomitant]
  6. METFORMIN HCL ER [Concomitant]
  7. PHENOBARBITAL [Concomitant]
  8. APAP W/BUTALBITAL [Concomitant]
  9. ACYCLOVIR [Concomitant]
  10. CLONAZEPAM [Concomitant]
  11. RISPERIDONE [Concomitant]
  12. OXYBUTYNIN [Concomitant]
  13. DIVALPROEX SODIUM [Concomitant]
  14. LEXAPRO [Concomitant]

REACTIONS (3)
  - Dyspnoea [Unknown]
  - Oedema [Unknown]
  - Weight increased [Unknown]
